FAERS Safety Report 5642584-1 (Version None)
Quarter: 2008Q1

REPORT INFORMATION
  Report Type: 
  Country: None (occurrence: None)
  Receive Date: 20080227
  Receipt Date: 20080227
  Transmission Date: 20080703
  Serious: Yes (Hospitalization)
  Sender: FDA-Public Use
  Company Number: None

PATIENT
  Sex: Female
  Weight: 63.05 kg

DRUGS (6)
  1. ARTHROTEC [Suspect]
     Dosage: 50 PO DAILY  (THERAPY DATES: PRIOR TO ADMISSION)
     Route: 048
  2. ACCUPRIL [Concomitant]
  3. PRILOSEC [Concomitant]
  4. EFFEXOR [Concomitant]
  5. XANAX [Concomitant]
  6. HYOSCYAMINE [Concomitant]

REACTIONS (4)
  - ANAEMIA [None]
  - ASTHENIA [None]
  - FATIGUE [None]
  - GASTROINTESTINAL HAEMORRHAGE [None]
